FAERS Safety Report 6899283-8 (Version None)
Quarter: 2010Q3

REPORT INFORMATION
  Report Type: 
  Country: None (occurrence: None)
  Receive Date: 20100802
  Receipt Date: 20080819
  Transmission Date: 20110219
  Serious: No
  Sender: FDA-Public Use
  Company Number: US-PFIZER INC-2007011728

PATIENT
  Sex: Female
  Weight: 53.5 kg

DRUGS (3)
  1. LYRICA [Suspect]
     Indication: BURNING SENSATION
     Dates: start: 20070116
  2. ZOLOFT [Suspect]
     Indication: ANXIETY
  3. PRILOSEC [Concomitant]

REACTIONS (13)
  - ABDOMINAL PAIN [None]
  - ANXIETY [None]
  - CONFUSIONAL STATE [None]
  - DECREASED APPETITE [None]
  - DIZZINESS [None]
  - FAECES HARD [None]
  - FATIGUE [None]
  - FEELING ABNORMAL [None]
  - HEADACHE [None]
  - MYALGIA [None]
  - PAIN [None]
  - WEIGHT DECREASED [None]
  - WEIGHT FLUCTUATION [None]
